FAERS Safety Report 8111840-X (Version None)
Quarter: 2012Q1

REPORT INFORMATION
  Report Type: 
  Country: None (occurrence: None)
  Receive Date: 20120203
  Receipt Date: 20120131
  Transmission Date: 20120608
  Serious: Yes (Disabling)
  Sender: FDA-Public Use
  Company Number: US-PFIZER INC-2012026823

PATIENT
  Sex: Male
  Weight: 118 kg

DRUGS (7)
  1. LIPITOR [Suspect]
     Indication: BLOOD CHOLESTEROL INCREASED
     Dosage: 10 MG, DAILY
     Dates: start: 19960101
  2. LOVAZA [Concomitant]
     Dosage: 1000 MG, DAILY
  3. OMEPRAZOLE [Concomitant]
     Dosage: 40 MG, 2X/DAY
  4. GABAPENTIN [Concomitant]
     Dosage: 300 MG, 5X/DAY
  5. DICLOFENAC [Concomitant]
     Dosage: 75 MG, 2X/DAY
  6. AMLODIPINE [Concomitant]
     Dosage: 10 MG, DAILY
  7. VITAMIN D [Concomitant]
     Dosage: 400 IU, DAILY

REACTIONS (4)
  - ARTHROPATHY [None]
  - JAW DISORDER [None]
  - PHARYNGEAL DISORDER [None]
  - LIMB OPERATION [None]
